FAERS Safety Report 21819148 (Version 4)
Quarter: 2023Q1

REPORT INFORMATION
  Report Type: Report from Study
  Country: ES (occurrence: ES)
  Receive Date: 20230104
  Receipt Date: 20230306
  Transmission Date: 20230418
  Serious: Yes (Hospitalization)
  Sender: FDA-Public Use
  Company Number: ES-GILEAD-2022-0610956

PATIENT
  Sex: Male
  Weight: 88.9 kg

DRUGS (21)
  1. SACITUZUMAB GOVITECAN-HZIY [Suspect]
     Active Substance: SACITUZUMAB GOVITECAN-HZIY
     Indication: Non-small cell lung cancer
     Dosage: 889 MG
     Route: 042
     Dates: start: 20221214, end: 20221214
  2. SACITUZUMAB GOVITECAN-HZIY [Suspect]
     Active Substance: SACITUZUMAB GOVITECAN-HZIY
     Dosage: 889 MG
     Route: 042
     Dates: start: 20230113, end: 20230113
  3. SACITUZUMAB GOVITECAN-HZIY [Suspect]
     Active Substance: SACITUZUMAB GOVITECAN-HZIY
     Dosage: UNK
     Route: 042
     Dates: start: 20221220, end: 20221220
  4. PEMBROLIZUMAB [Suspect]
     Active Substance: PEMBROLIZUMAB
     Indication: Non-small cell lung cancer
     Dosage: 200 MG
     Route: 042
     Dates: start: 20221214, end: 20221214
  5. PEMBROLIZUMAB [Suspect]
     Active Substance: PEMBROLIZUMAB
     Dosage: 200 MG
     Route: 042
     Dates: start: 20230113, end: 20230113
  6. PEMBROLIZUMAB [Suspect]
     Active Substance: PEMBROLIZUMAB
     Dosage: 200 MG
     Route: 042
     Dates: start: 20230228, end: 20230228
  7. CARBOPLATIN [Suspect]
     Active Substance: CARBOPLATIN
     Indication: Non-small cell lung cancer
     Dosage: 662 MG
     Route: 042
     Dates: start: 20221214, end: 20221214
  8. CARBOPLATIN [Suspect]
     Active Substance: CARBOPLATIN
     Dosage: 662 MG
     Route: 042
     Dates: start: 20230113, end: 20230113
  9. CARBOPLATIN [Suspect]
     Active Substance: CARBOPLATIN
     Route: 042
     Dates: start: 20230228, end: 20230228
  10. OMEPRAZOLE [Concomitant]
     Active Substance: OMEPRAZOLE
     Indication: Prophylaxis
     Dosage: UNK
     Route: 048
  11. OMEPRAZOLE [Concomitant]
     Active Substance: OMEPRAZOLE
     Dosage: UNK
     Route: 048
  12. FONDAPARINUX [Concomitant]
     Active Substance: FONDAPARINUX
     Indication: Hypertrophic cardiomyopathy
     Route: 058
  13. FONDAPARINUX [Concomitant]
     Active Substance: FONDAPARINUX
     Route: 058
  14. ATORVASTATIN [Concomitant]
     Active Substance: ATORVASTATIN
     Indication: Dyslipidaemia
     Route: 048
  15. ATORVASTATIN [Concomitant]
     Active Substance: ATORVASTATIN
     Route: 048
  16. FOLIC ACID [Concomitant]
     Active Substance: FOLIC ACID
     Indication: Prophylaxis
     Route: 048
  17. FOLIC ACID [Concomitant]
     Active Substance: FOLIC ACID
     Route: 048
  18. ATENOLOL [Concomitant]
     Active Substance: ATENOLOL
     Indication: Hypertrophic cardiomyopathy
     Route: 048
  19. ATENOLOL [Concomitant]
     Active Substance: ATENOLOL
     Route: 048
  20. PIPERACILLIN [Concomitant]
     Active Substance: PIPERACILLIN
     Indication: Febrile neutropenia
     Route: 042
     Dates: start: 20230126, end: 20230201
  21. TAZOBACTAM [Concomitant]
     Active Substance: TAZOBACTAM
     Indication: Febrile neutropenia
     Route: 042
     Dates: start: 20230126, end: 20230201

REACTIONS (2)
  - Neutropenic colitis [Recovered/Resolved]
  - Febrile neutropenia [Recovered/Resolved]

NARRATIVE: CASE EVENT DATE: 20221223
